FAERS Safety Report 6354581-1 (Version None)
Quarter: 2009Q3

REPORT INFORMATION
  Report Type: 
  Country: None (occurrence: None)
  Receive Date: 20090914
  Receipt Date: 20090903
  Transmission Date: 20100115
  Serious: Yes (Hospitalization)
  Sender: FDA-Public Use
  Company Number: MC-ASTRAZENECA-2009SE09745

PATIENT
  Age: 57 Year
  Sex: Male

DRUGS (1)
  1. XYLOCAINE [Suspect]
     Indication: ENDOSCOPY
     Dosage: TWO BOTTLES
     Route: 049
     Dates: start: 20090707, end: 20090707

REACTIONS (5)
  - DELAYED RECOVERY FROM ANAESTHESIA [None]
  - DEPRESSED LEVEL OF CONSCIOUSNESS [None]
  - DYSARTHRIA [None]
  - GAIT DISTURBANCE [None]
  - INCOHERENT [None]
